FAERS Safety Report 5345874-5 (Version None)
Quarter: 2007Q2

REPORT INFORMATION
  Report Type: 
  Country: None (occurrence: None)
  Receive Date: 20070426
  Receipt Date: 20070102
  Transmission Date: 20071010
  Serious: Yes (Other)
  Sender: FDA-Public Use
  Company Number: US-JNJFOC-20061202684

PATIENT
  Age: 75 Year
  Sex: Male
  Weight: 86.1834 kg

DRUGS (6)
  1. RAZADYNE [Suspect]
     Indication: DEMENTIA ALZHEIMER'S TYPE
     Dosage: 4 MG, 2 IN 1 DAY, ORAL
     Route: 048
     Dates: start: 20060601, end: 20060607
  2. PROZAC [Concomitant]
  3. TRAZODONE HCL [Concomitant]
  4. ATENOLOL [Concomitant]
  5. METHADONE HCL [Concomitant]
  6. COUMADIN [Concomitant]

REACTIONS (2)
  - AGGRESSION [None]
  - PARANOIA [None]
